FAERS Safety Report 6763656-4 (Version None)
Quarter: 2010Q2

REPORT INFORMATION
  Report Type: 
  Country: None (occurrence: None)
  Receive Date: 20100608
  Receipt Date: 20100601
  Transmission Date: 20101027
  Serious: Yes (Other)
  Sender: FDA-Public Use
  Company Number: 2010S1003544

PATIENT
  Age: 64 Year
  Sex: Male

DRUGS (1)
  1. .PHOSPHOSODA PLAVOR NOT SPECIFIED [Suspect]
     Indication: COLONOSCOPY
     Dosage: PO
     Route: 048
     Dates: start: 20050307, end: 20050307

REACTIONS (1)
  - RENAL FAILURE [None]
